FAERS Safety Report 10611717 (Version 2)
Quarter: 2014Q4

REPORT INFORMATION
  Report Type: Report from Study
  Country: CZ (occurrence: CZ)
  Receive Date: 20141126
  Receipt Date: 20141203
  Transmission Date: 20150529
  Serious: Yes (Hospitalization)
  Sender: FDA-Public Use
  Company Number: CZ-VERTEX PHARMACEUTICALS-2014-004652

PATIENT
  Age: 16 Year
  Sex: Female
  Weight: 52 kg

DRUGS (22)
  1. LACTOBACILLUS [Concomitant]
     Active Substance: LACTOBACILLUS ACIDOPHILUS
     Indication: PROPHYLAXIS
     Dosage: 1 DF, QD
     Route: 048
     Dates: start: 20141120, end: 20141120
  2. VX-770 FDC [Suspect]
     Active Substance: IVACAFTOR
     Indication: CYSTIC FIBROSIS
     Dosage: 250 MG, QAM
     Route: 048
     Dates: start: 20140224
  3. KALYDECO [Suspect]
     Active Substance: IVACAFTOR
     Indication: CYSTIC FIBROSIS
     Dosage: 250 MG, QPM
     Route: 048
     Dates: start: 20140224
  4. HELICID [Concomitant]
     Indication: ENZYME INDUCTION
     Dosage: 20 MG, QD
     Route: 048
     Dates: start: 20090101
  5. BRAMITOB [Concomitant]
     Indication: PSEUDOMONAS INFECTION
     Dosage: 1 DF, BID (ON/OFF CYCLES)
     Route: 055
     Dates: start: 20140201, end: 20141007
  6. VITAMIN K [Concomitant]
     Active Substance: PHYTONADIONE
     Indication: PANCREATIC INSUFFICIENCY
     Dosage: 5 DF, QD
     Route: 048
     Dates: start: 20140115, end: 20141121
  7. CIPLOX [Concomitant]
     Active Substance: CIPROFLOXACIN HYDROCHLORIDE
     Dosage: 750 MG, BID
     Route: 048
     Dates: start: 20141120, end: 20141121
  8. AZITHROMYCIN [Concomitant]
     Active Substance: AZITHROMYCIN ANHYDROUS
     Indication: INFLAMMATION
     Dosage: 1 DF, QOD
     Route: 048
     Dates: start: 20141013, end: 20141119
  9. KALYDECO [Suspect]
     Active Substance: IVACAFTOR
     Indication: CYSTIC FIBROSIS
     Dosage: 250 MG, QPM
     Route: 048
     Dates: start: 20130904, end: 20140223
  10. CREON [Concomitant]
     Active Substance: PANCRELIPASE AMYLASE\PANCRELIPASE LIPASE\PANCRELIPASE PROTEASE
     Indication: PANCREATIC INSUFFICIENCY
     Dosage: 22 DF, BEFORE MEALS
     Route: 048
     Dates: start: 19990101, end: 20141121
  11. VITAMIN A [Concomitant]
     Active Substance: VITAMIN A
     Indication: PANCREATIC INSUFFICIENCY
     Dosage: 1 DF, QD
     Route: 048
     Dates: start: 200108, end: 20141121
  12. VITAMIN E [Concomitant]
     Active Substance: .ALPHA.-TOCOPHEROL
     Indication: PANCREATIC INSUFFICIENCY
     Dosage: 200 MG MWF, 100 MG TU,TH,SAT,SUN
     Route: 048
     Dates: start: 20140115, end: 20141121
  13. URSOFALK [Concomitant]
     Active Substance: URSODIOL
     Indication: CYSTIC FIBROSIS HEPATIC DISEASE
     Dosage: 1-2 DF, QD
     Route: 048
     Dates: start: 200910, end: 20141121
  14. ATROVENT [Concomitant]
     Active Substance: IPRATROPIUM BROMIDE
     Indication: BRONCHIAL HYPERREACTIVITY
     Dosage: 3-4 DOSES
     Route: 055
     Dates: start: 20100101
  15. AERIUS [Concomitant]
     Active Substance: DESLORATADINE
     Indication: ATOPY
     Dosage: 1 DF, QD
     Route: 048
     Dates: start: 20090101
  16. VX-770 FDC [Suspect]
     Active Substance: IVACAFTOR
     Indication: CYSTIC FIBROSIS
     Dosage: 250 MG, QAM
     Route: 048
     Dates: start: 20130904, end: 20140223
  17. VITAMIN D [Concomitant]
     Active Substance: CHOLECALCIFEROL
     Indication: PANCREATIC INSUFFICIENCY
     Dosage: 6 DF, QD
     Route: 048
     Dates: start: 20140115, end: 20141121
  18. PULMOZYME [Concomitant]
     Active Substance: DORNASE ALFA
     Indication: SECRETION DISCHARGE
     Dosage: 1 DF, QD
     Route: 055
     Dates: start: 20030101
  19. VX-809 FDC [Suspect]
     Active Substance: IVACAFTOR
     Indication: CYSTIC FIBROSIS
     Dosage: 600 MG, QAM
     Route: 048
     Dates: start: 20140224
  20. AMILORID [Concomitant]
     Indication: SECRETION DISCHARGE
     Dosage: 3 ML, QD
     Route: 055
     Dates: start: 19990101
  21. VX-809 FDC [Suspect]
     Active Substance: IVACAFTOR
     Indication: CYSTIC FIBROSIS
     Dosage: 600 MG, QAM
     Route: 048
     Dates: start: 20130904, end: 20140223
  22. SERETIDE [Concomitant]
     Active Substance: FLUTICASONE FUROATE\SALMETEROL XINAFOATE
     Indication: BRONCHIAL HYPERREACTIVITY
     Dosage: 1 DF, BID
     Dates: start: 20030101

REACTIONS (1)
  - Chest pain [Recovered/Resolved]

NARRATIVE: CASE EVENT DATE: 20141120
